FAERS Safety Report 10663814 (Version 2)
Quarter: 2014Q4

REPORT INFORMATION
  Report Type: Spontaneous
  Country: US (occurrence: US)
  Receive Date: 20141219
  Receipt Date: 20141219
  Transmission Date: 20150529
  Serious: No
  Sender: FDA-Public Use
  Company Number: US-TEVA-480323USA

PATIENT
  Sex: Female
  Weight: 63.56 kg

DRUGS (11)
  1. HYDROCHLOROTHIAZIDE. [Concomitant]
     Active Substance: HYDROCHLOROTHIAZIDE
  2. OMEPRAZOLE. [Concomitant]
     Active Substance: OMEPRAZOLE
  3. NAPROXEN. [Suspect]
     Active Substance: NAPROXEN
     Route: 048
  4. LEVOTHYROXINE [Concomitant]
     Active Substance: LEVOTHYROXINE
     Indication: THYROID DISORDER
  5. FENOFIBRATE. [Concomitant]
     Active Substance: FENOFIBRATE
  6. FUROSEMIDE. [Concomitant]
     Active Substance: FUROSEMIDE
     Indication: HYPERTENSION
  7. GLIPIZIDE. [Concomitant]
     Active Substance: GLIPIZIDE
  8. INSULIN GLARGINE [Concomitant]
     Active Substance: INSULIN GLARGINE
  9. CLOPIDOGREL [Concomitant]
     Active Substance: CLOPIDOGREL BISULFATE
     Indication: CARDIAC DISORDER
  10. LISINOPRIL. [Concomitant]
     Active Substance: LISINOPRIL
  11. AXOTAL [Concomitant]
     Active Substance: ASPIRIN\BUTALBITAL
     Indication: HEADACHE

REACTIONS (3)
  - Drug ineffective [Unknown]
  - Malaise [Unknown]
  - Post herpetic neuralgia [Unknown]
